FAERS Safety Report 6554206-6 (Version None)
Quarter: 2010Q1

REPORT INFORMATION
  Report Type: 
  Country: None (occurrence: None)
  Receive Date: 20100122
  Receipt Date: 20100106
  Transmission Date: 20100710
  Serious: Yes (Hospitalization)
  Sender: FDA-Public Use
  Company Number: 2010AC000039

PATIENT
  Age: 71 Year
  Sex: Male

DRUGS (15)
  1. DIGOXIN [Suspect]
     Dosage: 0.25 MCG;QD;PO
     Route: 048
     Dates: start: 20080501
  2. ADVAIR DISKUS 100/50 [Concomitant]
  3. ALBUTEROL [Concomitant]
  4. ASPIRIN [Concomitant]
  5. WARFARIN SODIUM [Concomitant]
  6. HYDRALAZINE [Concomitant]
  7. IMDUR [Concomitant]
  8. FUROSEMIDE [Concomitant]
  9. NEXIUM [Concomitant]
  10. POTASSIUM [Concomitant]
  11. SPIRIVA [Concomitant]
  12. UNIPHYL [Concomitant]
  13. VICODIN [Concomitant]
  14. ZESTRIL [Concomitant]
  15. ZOCOR [Concomitant]

REACTIONS (6)
  - ATRIAL FIBRILLATION [None]
  - ATRIAL FLUTTER [None]
  - ECONOMIC PROBLEM [None]
  - EMOTIONAL DISORDER [None]
  - ILL-DEFINED DISORDER [None]
  - PAIN [None]
